FAERS Safety Report 7542986-2 (Version None)
Quarter: 2011Q2

REPORT INFORMATION
  Report Type: 
  Country: None (occurrence: None)
  Receive Date: 20110524
  Receipt Date: 20110310
  Transmission Date: 20111010
  Serious: No
  Sender: FDA-Public Use
  Company Number: 019908

PATIENT
  Sex: Male
  Weight: 63.5036 kg

DRUGS (15)
  1. TRAMADOL HCL [Concomitant]
  2. CIMZIA [Suspect]
  3. ARIPIPRAZOLE [Concomitant]
  4. DIVALPROEX SODIUM [Concomitant]
  5. `.. [Concomitant]
  6. CIMZIA [Suspect]
     Indication: CROHN'S DISEASE
     Dosage: (400 MG 1X/4 WEEKS SUBCUTANEOUS), (SUBCUTANEOUS), (SUBCUTANEOUS), (400 MG 2X/WEEK SUBCUTANEOUS)
     Route: 058
     Dates: start: 20090803
  7. CIMZIA [Suspect]
     Indication: CROHN'S DISEASE
     Dosage: (400 MG 1X/4 WEEKS SUBCUTANEOUS), (SUBCUTANEOUS), (SUBCUTANEOUS), (400 MG 2X/WEEK SUBCUTANEOUS)
     Route: 058
     Dates: start: 20110210
  8. CIMZIA [Suspect]
     Indication: CROHN'S DISEASE
     Dosage: (400 MG 1X/4 WEEKS SUBCUTANEOUS), (SUBCUTANEOUS), (SUBCUTANEOUS), (400 MG 2X/WEEK SUBCUTANEOUS)
     Route: 058
     Dates: start: 20081215
  9. AZATHIOPRINE [Concomitant]
  10. FERROUS SULPHATE /00023503/ [Concomitant]
  11. CIMZIA [Suspect]
  12. SERTRALINE [Concomitant]
  13. OMEPRAZOLE [Concomitant]
  14. PREDNISONE [Concomitant]
  15. COUMADIN [Concomitant]

REACTIONS (7)
  - VOMITING [None]
  - FATIGUE [None]
  - ABDOMINAL DISCOMFORT [None]
  - ABDOMINAL PAIN [None]
  - NAUSEA [None]
  - DIARRHOEA [None]
  - FREQUENT BOWEL MOVEMENTS [None]
